FAERS Safety Report 21058931 (Version 10)
Quarter: 2024Q2

REPORT INFORMATION
  Report Type: Report from Study
  Country: US (occurrence: US)
  Receive Date: 20220708
  Receipt Date: 20240616
  Transmission Date: 20240716
  Serious: Yes (Hospitalization, Other)
  Sender: FDA-Public Use
  Company Number: US-TAKEDA-2022TUS045714

PATIENT
  Age: 22 Year
  Sex: Male

DRUGS (6)
  1. RECOMBINATE [Suspect]
     Active Substance: ANTIHEMOPHILIC FACTOR, HUMAN RECOMBINANT
     Indication: Product used for unknown indication
     Dosage: 3000 INTERNATIONAL UNIT
     Route: 042
  2. RECOMBINATE [Suspect]
     Active Substance: ANTIHEMOPHILIC FACTOR, HUMAN RECOMBINANT
     Dosage: 2500 INTERNATIONAL UNIT
     Route: 042
  3. RECOMBINATE [Suspect]
     Active Substance: ANTIHEMOPHILIC FACTOR, HUMAN RECOMBINANT
     Dosage: 2928 INTERNATIONAL UNIT
     Route: 042
  4. RECOMBINATE [Suspect]
     Active Substance: ANTIHEMOPHILIC FACTOR, HUMAN RECOMBINANT
     Dosage: 1980 INTERNATIONAL UNIT
     Route: 065
  5. RECOMBINATE [Suspect]
     Active Substance: ANTIHEMOPHILIC FACTOR, HUMAN RECOMBINANT
     Dosage: 1010 INTERNATIONAL UNIT
     Route: 065
  6. RECOMBINATE [Suspect]
     Active Substance: ANTIHEMOPHILIC FACTOR, HUMAN RECOMBINANT
     Dosage: 3000 INTERNATIONAL UNIT
     Route: 065

REACTIONS (7)
  - Haemarthrosis [Recovered/Resolved]
  - Spontaneous haemorrhage [Recovered/Resolved]
  - Ligament sprain [Recovered/Resolved]
  - Skin laceration [Unknown]
  - Pain [Unknown]
  - Arthralgia [Recovered/Resolved]
  - Product distribution issue [Unknown]

NARRATIVE: CASE EVENT DATE: 20200904
